FAERS Safety Report 19074772 (Version 2)
Quarter: 2021Q2

REPORT INFORMATION
  Report Type: Report from Study
  Country: US (occurrence: US)
  Receive Date: 20210330
  Receipt Date: 20210417
  Transmission Date: 20210717
  Serious: No
  Sender: FDA-Public Use
  Company Number: NVSC2021US069909

PATIENT
  Age: 60 Year
  Sex: Male

DRUGS (1)
  1. ENTRESTO [Suspect]
     Active Substance: SACUBITRIL\VALSARTAN
     Indication: CARDIAC FAILURE
     Dosage: 100 MG (49/51 MG), BID
     Route: 065
     Dates: start: 202010

REACTIONS (2)
  - Otorrhoea [Unknown]
  - Weight decreased [Unknown]

NARRATIVE: CASE EVENT DATE: 202101
